FAERS Safety Report 8523598-0 (Version None)
Quarter: 2012Q3

REPORT INFORMATION
  Report Type: 
  Country: None (occurrence: None)
  Receive Date: 20120720
  Receipt Date: 20120712
  Transmission Date: 20120928
  Serious: Yes (Hospitalization)
  Sender: FDA-Public Use
  Company Number: US-SHIRE-ALL1-2012-03420

PATIENT
  Sex: Female
  Weight: 72.109 kg

DRUGS (4)
  1. LIALDA [Suspect]
     Indication: COLITIS ULCERATIVE
     Dosage: 2.4 G, 1X/DAY:QD (TWO, 1.2G TABLETS)
     Route: 048
     Dates: start: 20101101
  2. PROBIOTICS NOS [Concomitant]
     Indication: SUPPLEMENTATION THERAPY
     Dosage: UNK, UNKNOWN
     Route: 048
  3. LIALDA [Suspect]
     Dosage: UNK, 1X/DAY:QD
     Route: 048
     Dates: end: 20120710
  4. LIALDA [Suspect]
     Dosage: 2.4 G, 2X/DAY:BID
     Route: 048
     Dates: start: 20120711

REACTIONS (5)
  - ABDOMINAL PAIN [None]
  - COLITIS ULCERATIVE [None]
  - DRUG PRESCRIBING ERROR [None]
  - ARTHRALGIA [None]
  - DIARRHOEA HAEMORRHAGIC [None]
